FAERS Safety Report 11877880 (Version 2)
Quarter: 2016Q1

REPORT INFORMATION
  Report Type: Report from Study
  Country: US (occurrence: US)
  Receive Date: 20151230
  Receipt Date: 20160115
  Transmission Date: 20160526
  Serious: Yes (Death, Other)
  Sender: FDA-Public Use
  Company Number: US-ROCHE-1584576

PATIENT
  Sex: Male

DRUGS (7)
  1. ONDANSETRON [Concomitant]
     Active Substance: ONDANSETRON
     Indication: VOMITING
  2. CISPLATIN. [Concomitant]
     Active Substance: CISPLATIN
  3. ALIMTA [Concomitant]
     Active Substance: PEMETREXED DISODIUM
     Indication: LUNG NEOPLASM MALIGNANT
  4. CARBOPLATIN. [Concomitant]
     Active Substance: CARBOPLATIN
  5. AVASTIN [Suspect]
     Active Substance: BEVACIZUMAB
     Indication: LUNG NEOPLASM MALIGNANT
  6. AVASTIN [Suspect]
     Active Substance: BEVACIZUMAB
     Indication: CENTRAL NERVOUS SYSTEM NECROSIS
     Dosage: DATE OF MOST RECENT DOSE PRIOR TO SAE: 12/MAR/2015
     Route: 065
     Dates: start: 20150129, end: 20150312
  7. ETOPOSIDE. [Concomitant]
     Active Substance: ETOPOSIDE

REACTIONS (5)
  - Pulmonary embolism [Unknown]
  - Fatigue [Unknown]
  - Asthenia [Unknown]
  - Death [Fatal]
  - Dyspnoea [Unknown]
